FAERS Safety Report 11154323 (Version 3)
Quarter: 2015Q2

REPORT INFORMATION
  Report Type: Report from Study
  Country: BE (occurrence: BE)
  Receive Date: 20150602
  Receipt Date: 20150629
  Transmission Date: 20150821
  Serious: Yes (Other)
  Sender: FDA-Public Use
  Company Number: BE-BEH-2015051461

PATIENT
  Age: 10 Year
  Sex: Male

DRUGS (1)
  1. HIZENTRA [Suspect]
     Active Substance: HUMAN IMMUNOGLOBULIN G
     Indication: HYPOGAMMAGLOBULINAEMIA
     Route: 058

REACTIONS (11)
  - Paraesthesia [Unknown]
  - Musculoskeletal stiffness [Unknown]
  - Skin discolouration [Unknown]
  - Limb injury [Unknown]
  - Peripheral swelling [Unknown]
  - Pain [Unknown]
  - Complex regional pain syndrome [Unknown]
  - Pain in extremity [Unknown]
  - Peripheral swelling [Unknown]
  - Peripheral swelling [Unknown]
  - Pain in extremity [Unknown]

NARRATIVE: CASE EVENT DATE: 20150521
